FAERS Safety Report 12069394 (Version 3)
Quarter: 2016Q2

REPORT INFORMATION
  Report Type: Report from Study
  Country: ES (occurrence: ES)
  Receive Date: 20160211
  Receipt Date: 20160429
  Transmission Date: 20160815
  Serious: Yes (Death, Hospitalization, Other)
  Sender: FDA-Public Use
  Company Number: ES-AMGEN-ESPNI2016016570

PATIENT
  Age: 70 Year
  Sex: Male

DRUGS (4)
  1. CARFILZOMIB [Suspect]
     Active Substance: CARFILZOMIB
     Indication: PLASMA CELL MYELOMA
     Dosage: 33 MG, EVERY 24 HOURS
     Route: 042
     Dates: start: 20160202, end: 20160203
  2. URBASON                            /00049601/ [Concomitant]
     Active Substance: METHYLPREDNISOLONE
     Dosage: 40 MG, UNK
  3. DEXAMETHASONE. [Concomitant]
     Active Substance: DEXAMETHASONE
     Dosage: 4 MG, UNK
  4. SERUM ALBUMIN HUMAN [Concomitant]
     Dosage: 20 %, UNK

REACTIONS (5)
  - Cardiac failure [Unknown]
  - Myocardial ischaemia [Unknown]
  - Pulmonary embolism [Unknown]
  - Sudden death [Fatal]
  - Myocardial infarction [Unknown]

NARRATIVE: CASE EVENT DATE: 20160204
